FAERS Safety Report 5674242-1 (Version None)
Quarter: 2008Q1

REPORT INFORMATION
  Report Type: 
  Country: None (occurrence: None)
  Receive Date: 20080320
  Receipt Date: 20080310
  Transmission Date: 20080703
  Serious: Yes (Death)
  Sender: FDA-Public Use
  Company Number: BE-BAYER-200812248GPV

PATIENT
  Age: 0 Hour
  Sex: Male

DRUGS (1)
  1. MIRENA [Suspect]
     Route: 064
     Dates: start: 20070101, end: 20071022

REACTIONS (4)
  - BACTERIAL INFECTION [None]
  - HAEMORRHAGE [None]
  - PLACENTA ACCRETA [None]
  - PREMATURE BABY [None]
